FAERS Safety Report 21651213 (Version 2)
Quarter: 2022Q4

REPORT INFORMATION
  Report Type: Report from Study
  Country: JP (occurrence: JP)
  Receive Date: 20221128
  Receipt Date: 20221207
  Transmission Date: 20230113
  Serious: No
  Sender: FDA-Public Use
  Company Number: JP-DSJP-DSJ-2022-142667

PATIENT
  Sex: Male
  Weight: 54.9 kg

DRUGS (2)
  1. PRASUGREL [Suspect]
     Active Substance: PRASUGREL
     Indication: Thrombotic cerebral infarction
     Dosage: 3.75 MG, QD
     Route: 048
     Dates: start: 20220828, end: 20220923
  2. PRASUGREL [Suspect]
     Active Substance: PRASUGREL
     Indication: Prophylaxis

REACTIONS (1)
  - Aortic dissection [Recovered/Resolved]
